FAERS Safety Report 15140435 (Version 1)
Quarter: 2018Q3

REPORT INFORMATION
  Report Type: Report from Study
  Country: US (occurrence: US)
  Receive Date: 20180713
  Receipt Date: 20180713
  Transmission Date: 20181010
  Serious: Yes (Other)
  Sender: FDA-Public Use
  Company Number: PHEH2018US027522

PATIENT
  Age: 32 Year
  Sex: Female

DRUGS (1)
  1. GILENYA [Suspect]
     Active Substance: FINGOLIMOD HYDROCHLORIDE
     Indication: PRODUCT USED FOR UNKNOWN INDICATION
     Dosage: 0.5 MG, QD
     Route: 048
     Dates: start: 20180622

REACTIONS (7)
  - Hyperhidrosis [Unknown]
  - Hemianaesthesia [Unknown]
  - Body temperature abnormal [Unknown]
  - Vomiting [Unknown]
  - Paraesthesia [Unknown]
  - Asthenia [Unknown]
  - Chest pain [Unknown]

NARRATIVE: CASE EVENT DATE: 20180630
